FAERS Safety Report 10639365 (Version 1)
Quarter: 2014Q4

REPORT INFORMATION
  Report Type: Spontaneous
  Country: FR (occurrence: FR)
  Receive Date: 20141208
  Receipt Date: 20141208
  Transmission Date: 20150529
  Serious: Yes (Hospitalization)
  Sender: FDA-Public Use
  Company Number: FR-MYLANLABS-2014M1013334

PATIENT

DRUGS (5)
  1. LOSARTAN [Concomitant]
     Active Substance: LOSARTAN
     Dosage: DAILY
     Route: 048
  2. OLANZAPINE. [Suspect]
     Active Substance: OLANZAPINE
     Dosage: LONG-ACTING INJECTION
     Route: 030
  3. NICARDIPINE [Concomitant]
     Active Substance: NICARDIPINE
     Dosage: DAILY
     Route: 048
  4. LOXAPINE. [Concomitant]
     Active Substance: LOXAPINE SUCCINATE
     Dosage: DAILY
     Route: 048
  5. HYDROCHLOROTHIAZIDE. [Concomitant]
     Active Substance: HYDROCHLOROTHIAZIDE
     Dosage: DAILY
     Route: 048

REACTIONS (1)
  - Post-injection delirium sedation syndrome [Recovering/Resolving]
